FAERS Safety Report 23135602 (Version 1)
Quarter: 2023Q4

REPORT INFORMATION
  Report Type: Spontaneous
  Country: IT (occurrence: IT)
  Receive Date: 20231101
  Receipt Date: 20231101
  Transmission Date: 20240109
  Serious: Yes (Other)
  Sender: FDA-Public Use
  Company Number: None

PATIENT
  Age: 41 Year
  Sex: Male

DRUGS (3)
  1. IRINOTECAN HYDROCHLORIDE [Suspect]
     Active Substance: IRINOTECAN HYDROCHLORIDE
     Dosage: 273 MG
     Route: 042
     Dates: start: 20230404, end: 20231017
  2. OXALIPLATIN [Suspect]
     Active Substance: OXALIPLATIN
     Dosage: 154 MG
     Route: 042
     Dates: start: 20230404, end: 20230822
  3. FLUOROURACIL [Suspect]
     Active Substance: FLUOROURACIL
     Dosage: 4368 MG
     Route: 042
     Dates: start: 20230404, end: 20231017

REACTIONS (3)
  - Neurotoxicity [Not Recovered/Not Resolved]
  - Leukopenia [Not Recovered/Not Resolved]
  - Neutropenia [Not Recovered/Not Resolved]

NARRATIVE: CASE EVENT DATE: 20230905
